FAERS Safety Report 24728855 (Version 1)
Quarter: 2024Q4

REPORT INFORMATION
  Report Type: Report from Study
  Country: GB (occurrence: GB)
  Receive Date: 20241212
  Receipt Date: 20241212
  Transmission Date: 20250114
  Serious: Yes (Life-Threatening, Hospitalization)
  Sender: AMGEN
  Company Number: GB-Vifor (International) Inc.-VIT-2024-05778

PATIENT
  Age: 75 Year
  Sex: Male
  Weight: 98.4 kg

DRUGS (16)
  1. AVACOPAN [Suspect]
     Active Substance: AVACOPAN
     Indication: Anti-neutrophil cytoplasmic antibody positive vasculitis
     Dosage: TWICE DAILY (BD)
     Route: 048
     Dates: start: 20230920, end: 20240317
  2. PREDNISOLONE [Concomitant]
     Active Substance: PREDNISOLONE
     Indication: Anti-neutrophil cytoplasmic antibody positive vasculitis
     Dosage: WEANING DOSE
     Route: 048
     Dates: start: 20230919, end: 20230927
  3. PREDNISOLONE [Concomitant]
     Active Substance: PREDNISOLONE
     Dosage: COMPLETION OF PLANNED COURSE
     Route: 048
     Dates: start: 20230928, end: 20231004
  4. PREDNISOLONE [Concomitant]
     Active Substance: PREDNISOLONE
     Dosage: WEANING DOSE
     Route: 048
     Dates: start: 20240318, end: 20240504
  5. PREDNISOLONE [Concomitant]
     Active Substance: PREDNISOLONE
     Dosage: 35,MG,QD
     Route: 048
     Dates: start: 20240504
  6. FUROSEMIDE [Concomitant]
     Active Substance: FUROSEMIDE
     Indication: Oedema
     Dosage: 40,MG,QD
     Route: 048
     Dates: start: 20231214, end: 20240318
  7. FLUCONAZOLE [Concomitant]
     Active Substance: FLUCONAZOLE
     Indication: Fungal infection
     Dosage: COMPLETION OF PLANNED COURSE
     Route: 048
     Dates: start: 20231214, end: 20240317
  8. COTRIMOXAZOLE [Concomitant]
     Active Substance: SULFAMETHOXAZOLE\TRIMETHOPRIM
     Indication: Prophylaxis
     Dosage: EVERY 2 DAYS, COMPLETION OF PLANNED COURSE
     Route: 048
     Dates: start: 20231214, end: 20240317
  9. FINASTERIDE [Concomitant]
     Active Substance: FINASTERIDE
     Indication: Prostatomegaly
     Dosage: 5,MG,QD
     Route: 048
     Dates: start: 20231214
  10. TAMSULOSIN [Concomitant]
     Active Substance: TAMSULOSIN
     Indication: Prostatomegaly
     Dosage: ONGOING
     Route: 048
     Dates: start: 20231214
  11. OMEPRAZOLE [Concomitant]
     Active Substance: OMEPRAZOLE
     Indication: Gastrointestinal disorder prophylaxis
     Dosage: CHANGE TO LANSOPRAZOLE
     Route: 048
     Dates: start: 20230920, end: 20240325
  12. BISOPROLOL [Concomitant]
     Active Substance: BISOPROLOL
     Indication: Cardiac failure
     Dosage: 1.25,MG,QD
     Route: 048
  13. LERCANIDIPINE [Concomitant]
     Active Substance: LERCANIDIPINE
     Indication: Cardiac failure
     Dosage: 20,MG,QD
     Route: 048
     Dates: start: 20231016
  14. LANSOPRAZOLE [Concomitant]
     Active Substance: LANSOPRAZOLE
     Indication: Gastrointestinal disorder prophylaxis
     Dosage: 30,MG,QD
     Route: 048
     Dates: start: 20240325
  15. ATORVASTATIN [Concomitant]
     Active Substance: ATORVASTATIN
     Indication: Blood cholesterol
     Dosage: 20,MG,QD
     Route: 048
     Dates: start: 20240325
  16. AZATHIOPRINE [Concomitant]
     Active Substance: AZATHIOPRINE
     Indication: Anti-neutrophil cytoplasmic antibody positive vasculitis
     Dosage: UNK,UNK,QD
     Route: 048
     Dates: end: 20240318

REACTIONS (5)
  - Pneumonia pneumococcal [Recovered/Resolved]
  - Pulmonary embolism [Recovering/Resolving]
  - Acute coronary syndrome [Recovering/Resolving]
  - Interstitial lung disease [Not Recovered/Not Resolved]
  - Pneumonia [Recovered/Resolved]

NARRATIVE: CASE EVENT DATE: 20240318
